FAERS Safety Report 10579482 (Version 1)
Quarter: 2014Q4

REPORT INFORMATION
  Report Type: Spontaneous
  Country: CA (occurrence: CA)
  Receive Date: 20141112
  Receipt Date: 20141112
  Transmission Date: 20150529
  Serious: Yes (Hospitalization)
  Sender: FDA-Public Use
  Company Number: CA-BAYER-2014-164652

PATIENT
  Age: 57 Year
  Sex: Female
  Weight: 50 kg

DRUGS (2)
  1. GADOVIST [Suspect]
     Active Substance: GADOBUTROL
     Indication: NUCLEAR MAGNETIC RESONANCE IMAGING
     Dosage: 5 ML, UNK BOLUS
     Route: 040
     Dates: start: 20141104, end: 20141104
  2. GADOVIST [Suspect]
     Active Substance: GADOBUTROL
     Indication: BALANCE DISORDER

REACTIONS (2)
  - Dyskinesia [None]
  - Clonus [Recovered/Resolved]

NARRATIVE: CASE EVENT DATE: 20141104
